FAERS Safety Report 20665705 (Version 1)
Quarter: 2022Q2

REPORT INFORMATION
  Report Type: Spontaneous
  Country: None (occurrence: CN)
  Receive Date: 20220402
  Receipt Date: 20220402
  Transmission Date: 20220720
  Serious: Yes (Life-Threatening, Hospitalization)
  Sender: FDA-Public Use
  Company Number: CN-Jiangsu Hengrui Medicine Co., Ltd.-2127347

PATIENT
  Age: 64 Year
  Sex: Male
  Weight: 46 kg

DRUGS (2)
  1. OXALIPLATIN [Suspect]
     Active Substance: OXALIPLATIN
     Indication: Rectal adenocarcinoma
     Route: 041
     Dates: start: 20210527, end: 20210527
  2. CAPECITABINE [Suspect]
     Active Substance: CAPECITABINE
     Route: 048
     Dates: start: 20210527

REACTIONS (6)
  - Gastroenteritis [Recovering/Resolving]
  - Myelosuppression [Recovered/Resolved]
  - Electrolyte imbalance [Recovered/Resolved]
  - Hypoproteinaemia [Recovered/Resolved]
  - Febrile neutropenia [Recovering/Resolving]
  - Wound infection [Recovering/Resolving]

NARRATIVE: CASE EVENT DATE: 20210609
